FAERS Safety Report 5870804-7 (Version None)
Quarter: 2008Q3

REPORT INFORMATION
  Report Type: 
  Country: None (occurrence: None)
  Receive Date: 20080904
  Receipt Date: 20080806
  Transmission Date: 20090109
  Serious: Yes (Hospitalization)
  Sender: FDA-Public Use
  Company Number: US-JNJFOC-20080801836

PATIENT
  Age: 50 Year
  Sex: Male
  Weight: 77.11 kg

DRUGS (7)
  1. INVEGA [Suspect]
     Route: 048
  2. INVEGA [Suspect]
     Indication: SCHIZOPHRENIA
     Route: 048
  3. CYMBALTA [Concomitant]
     Indication: DRUG USE FOR UNKNOWN INDICATION
  4. BENZTROPINE MESYLATE [Concomitant]
     Indication: DRUG USE FOR UNKNOWN INDICATION
  5. CLOZAPINE [Concomitant]
  6. CATOPRESS [Concomitant]
     Indication: HYPERTENSION
  7. DIOVAN [Concomitant]
     Indication: HYPERTENSION

REACTIONS (1)
  - PARKINSONISM [None]
